FAERS Safety Report 15999093 (Version 1)
Quarter: 2019Q1

REPORT INFORMATION
  Report Type: Spontaneous
  Country: FR (occurrence: FR)
  Receive Date: 20190225
  Receipt Date: 20190225
  Transmission Date: 20190418
  Serious: Yes (Life-Threatening, Hospitalization, Other)
  Sender: FDA-Public Use
  Company Number: FR-BRISTOL-MYERS SQUIBB COMPANY-BMS-2019-015259

PATIENT
  Age: 76 Year
  Sex: Male

DRUGS (1)
  1. OPDIVO [Suspect]
     Active Substance: NIVOLUMAB
     Indication: METASTATIC MALIGNANT MELANOMA
     Dosage: 240 MG, Q2WK
     Route: 042
     Dates: start: 20181121, end: 20181217

REACTIONS (4)
  - Dysphagia [Recovering/Resolving]
  - Neck pain [Recovering/Resolving]
  - Diplopia [Recovered/Resolved with Sequelae]
  - Myasthenia gravis [Recovering/Resolving]

NARRATIVE: CASE EVENT DATE: 201901
